FAERS Safety Report 24052472 (Version 1)
Quarter: 2024Q3

REPORT INFORMATION
  Report Type: Report from Study
  Country: BR (occurrence: BR)
  Receive Date: 20240705
  Receipt Date: 20240705
  Transmission Date: 20241017
  Serious: Yes (Other)
  Sender: JOHNSON AND JOHNSON
  Company Number: BR-JNJFOC-20240701862

PATIENT
  Age: 32 Year
  Sex: Male
  Weight: 65 kg

DRUGS (3)
  1. INFLIXIMAB [Suspect]
     Active Substance: INFLIXIMAB
     Indication: Crohn^s disease
     Route: 041
     Dates: start: 2017, end: 2023
  2. INFLIXIMAB [Suspect]
     Active Substance: INFLIXIMAB
     Dosage: 15-FEB-2024 WEEK 0, 29-FEB-2024 WEEK 2, 03-APR-2024 WEEK 6
     Route: 041
     Dates: start: 20240215
  3. INFLIXIMAB [Suspect]
     Active Substance: INFLIXIMAB
     Route: 041

REACTIONS (4)
  - Crohn^s disease [Unknown]
  - Influenza [Unknown]
  - Therapeutic response decreased [Unknown]
  - Off label use [Unknown]

NARRATIVE: CASE EVENT DATE: 20240403
